FAERS Safety Report 10021036 (Version 1)
Quarter: 2014Q1

REPORT INFORMATION
  Report Type: Spontaneous
  Country: US (occurrence: None)
  Receive Date: 20140318
  Receipt Date: 20140318
  Transmission Date: 20141002
  Serious: Yes (Other)
  Sender: FDA-Public Use
  Company Number: None

PATIENT
  Sex: Male

DRUGS (1)
  1. TIVICAY [Suspect]
     Indication: HIV INFECTION
     Route: 048
     Dates: start: 201310, end: 201403

REACTIONS (1)
  - Headache [None]
